FAERS Safety Report 6938947-4 (Version None)
Quarter: 2010Q3

REPORT INFORMATION
  Report Type: 
  Country: None (occurrence: None)
  Receive Date: 20100824
  Receipt Date: 20100813
  Transmission Date: 20110219
  Serious: Yes (Other)
  Sender: FDA-Public Use
  Company Number: US-JNJFOC-20100805250

PATIENT
  Sex: Female
  Weight: 87.54 kg

DRUGS (2)
  1. REMICADE [Suspect]
     Indication: RHEUMATOID ARTHRITIS
     Route: 042
  2. METHOTREXATE [Concomitant]

REACTIONS (5)
  - APHAGIA [None]
  - DRUG EFFECT DECREASED [None]
  - EPISTAXIS [None]
  - NASAL DISCOMFORT [None]
  - ORAL PAIN [None]
